FAERS Safety Report 9269775 (Version 1)
Quarter: 2013Q2

REPORT INFORMATION
  Report Type: Report from Study
  Country: US (occurrence: US)
  Receive Date: 20130503
  Receipt Date: 20130503
  Transmission Date: 20140414
  Serious: Yes (Hospitalization)
  Sender: FDA-Public Use
  Company Number: PHEH2011US013326

PATIENT
  Age: 13 Year
  Sex: Female

DRUGS (2)
  1. TOBI [Suspect]
     Dosage: 300 MG, DAILY
     Dates: start: 20100818
  2. PULMOZYME [Concomitant]
     Dosage: 2.5 ML, DAILY

REACTIONS (1)
  - Upper respiratory tract infection [Unknown]
